FAERS Safety Report 7148355-1 (Version None)
Quarter: 2010Q4

REPORT INFORMATION
  Report Type: 
  Country: None (occurrence: None)
  Receive Date: 20101209
  Receipt Date: 20101201
  Transmission Date: 20110411
  Serious: Yes (Hospitalization)
  Sender: FDA-Public Use
  Company Number: CA-JNJFOC-20101101465

PATIENT
  Sex: Female
  Weight: 76 kg

DRUGS (6)
  1. REMICADE [Suspect]
     Indication: ANKYLOSING SPONDYLITIS
     Route: 042
  2. REMICADE [Suspect]
     Route: 042
  3. REMICADE [Suspect]
     Route: 042
  4. REMICADE [Suspect]
     Indication: CROHN'S DISEASE
     Route: 042
  5. REMICADE [Suspect]
     Route: 042
  6. REMICADE [Suspect]
     Route: 042

REACTIONS (8)
  - DUODENAL ULCER HAEMORRHAGE [None]
  - INFLUENZA [None]
  - LIVER DISORDER [None]
  - LYMPHOMA [None]
  - NASOPHARYNGITIS [None]
  - PAIN [None]
  - RENAL DISORDER [None]
  - SEPSIS [None]
